FAERS Safety Report 21083432 (Version 1)
Quarter: 2022Q3

REPORT INFORMATION
  Report Type: Spontaneous
  Country: FR (occurrence: FR)
  Receive Date: 20220714
  Receipt Date: 20220714
  Transmission Date: 20221027
  Serious: Yes (Other)
  Sender: FDA-Public Use
  Company Number: FR-ALLERGAN-2222116US

PATIENT
  Sex: Female

DRUGS (1)
  1. OZURDEX [Suspect]
     Active Substance: DEXAMETHASONE
     Indication: Papilloedema
     Dosage: 0.7 MG, SINGLE
     Route: 031

REACTIONS (4)
  - Papilloedema [Unknown]
  - Condition aggravated [Unknown]
  - Optic nerve neoplasm [Unknown]
  - Off label use [Unknown]
